FAERS Safety Report 9817263 (Version 2)
Quarter: 2014Q1

REPORT INFORMATION
  Report Type: Spontaneous
  Country: AR (occurrence: AR)
  Receive Date: 20140115
  Receipt Date: 20140115
  Transmission Date: 20141002
  Serious: Yes (Hospitalization)
  Sender: FDA-Public Use
  Company Number: AR-ROCHE-1329780

PATIENT
  Age: 42 Year
  Sex: Female
  Weight: 40 kg

DRUGS (5)
  1. ACTEMRA [Suspect]
     Indication: RHEUMATOID ARTHRITIS
     Dosage: LAST INFUSION PRIOR TO SAE WAS ON 09/SEP/2013
     Route: 042
     Dates: start: 201307
  2. FOLIC ACID [Concomitant]
     Route: 048
  3. LEVOTHYROXINE [Concomitant]
     Indication: HYPOTHYROIDISM
     Route: 048
  4. OMEPRAZOLE [Concomitant]
     Route: 048
  5. VITAMIN B12 [Concomitant]
     Route: 048

REACTIONS (1)
  - Arrhythmia supraventricular [Not Recovered/Not Resolved]
